FAERS Safety Report 8081144-2 (Version None)
Quarter: 2012Q1

REPORT INFORMATION
  Report Type: 
  Country: None (occurrence: None)
  Receive Date: 20120130
  Receipt Date: 20120126
  Transmission Date: 20120608
  Serious: Yes (Hospitalization)
  Sender: FDA-Public Use
  Company Number: US-GLAXOSMITHKLINE-A0959672A

PATIENT
  Age: 59 Year
  Sex: Male
  Weight: 81.8 kg

DRUGS (1)
  1. VOTRIENT [Suspect]
     Indication: MALIGNANT URINARY TRACT NEOPLASM
     Dosage: 800MG PER DAY
     Route: 048
     Dates: start: 20111102

REACTIONS (4)
  - HEPATIC ENZYME ABNORMAL [None]
  - PRURITUS [None]
  - YELLOW SKIN [None]
  - BLOOD COUNT ABNORMAL [None]
